FAERS Safety Report 7228048-2 (Version None)
Quarter: 2011Q1

REPORT INFORMATION
  Report Type: 
  Country: None (occurrence: None)
  Receive Date: 20110112
  Receipt Date: 20110112
  Transmission Date: 20110831
  Serious: Yes (Other)
  Sender: FDA-Public Use
  Company Number: None

PATIENT
  Sex: Female
  Weight: 81.1939 kg

DRUGS (1)
  1. ULTRAN [Suspect]
     Indication: OSTEOARTHRITIS
     Dosage: 50 MG ONE TO TWO EVERY FOUR HOURS FOR OSTEOARTHROSIS

REACTIONS (2)
  - PRODUCT SUBSTITUTION ISSUE [None]
  - DRUG EFFECT DECREASED [None]
